FAERS Safety Report 4381538-2 (Version None)
Quarter: 2004Q2

REPORT INFORMATION
  Report Type: 
  Country: None (occurrence: None)
  Receive Date: 20040616
  Receipt Date: 20040604
  Transmission Date: 20050107
  Serious: Yes (Other)
  Sender: FDA-Public Use
  Company Number: 2004037863

PATIENT
  Age: 58 Year
  Sex: Female
  Weight: 55.7924 kg

DRUGS (5)
  1. NEURONTIN [Suspect]
     Indication: TOOTHACHE
     Dosage: 1200 MG (400 MG, 3 IN 1 D ) ORAL
     Route: 048
  2. ALPRAZOLAM [Concomitant]
  3. VICODIN [Concomitant]
  4. CONJUGATED ESTROGENS [Concomitant]
  5. DICYCLOVERINE HYDROCHLORIDE (DICYCLOVERINE HYDROCHLORIDE) [Concomitant]

REACTIONS (9)
  - BACK PAIN [None]
  - CONDITION AGGRAVATED [None]
  - DEPRESSION [None]
  - INTERVERTEBRAL DISC PROTRUSION [None]
  - MEDICAL DEVICE DISCOMFORT [None]
  - MUSCLE SPASMS [None]
  - NAUSEA [None]
  - ORAL DISCOMFORT [None]
  - WEIGHT DECREASED [None]
